FAERS Safety Report 6683723-3 (Version None)
Quarter: 2010Q2

REPORT INFORMATION
  Report Type: 
  Country: None (occurrence: None)
  Receive Date: 20100416
  Receipt Date: 20100408
  Transmission Date: 20101027
  Serious: No
  Sender: FDA-Public Use
  Company Number: US-BIOGENIDEC-2010BI011962

PATIENT
  Age: 47 Year
  Sex: Male

DRUGS (2)
  1. TYSABRI [Suspect]
     Indication: MULTIPLE SCLEROSIS
     Route: 042
     Dates: start: 20050225, end: 20050225
  2. TYSABRI [Suspect]
     Route: 042
     Dates: start: 20061102

REACTIONS (3)
  - OSTEOMYELITIS [None]
  - SKIN LACERATION [None]
  - SKIN ULCER [None]
